FAERS Safety Report 11127193 (Version 1)
Quarter: 2015Q2

REPORT INFORMATION
  Report Type: Spontaneous
  Country: US (occurrence: None)
  Receive Date: 20150520
  Receipt Date: 20150520
  Transmission Date: 20150821
  Serious: Yes (Disabling)
  Sender: FDA-Public Use
  Company Number: None

PATIENT
  Age: 79 Year
  Sex: Female
  Weight: 147 kg

DRUGS (6)
  1. VITAMIN C IN WATER [Concomitant]
  2. APRISO [Suspect]
     Active Substance: MESALAMINE
     Indication: COLITIS ULCERATIVE
     Dosage: 0.375 GM, 3 CAPSULES, EVERY MORNING BY MOUTH
     Route: 048
     Dates: start: 20150219, end: 20150501
  3. SIMVASTATIN. [Concomitant]
     Active Substance: SIMVASTATIN
  4. LEVOTHYROXINE [Concomitant]
     Active Substance: LEVOTHYROXINE
  5. CALCIUM + D [Concomitant]
     Active Substance: CALCIUM\VITAMIN D
  6. BABY ASPIRIN [Concomitant]
     Active Substance: ASPIRIN

REACTIONS (8)
  - Facial pain [None]
  - Vision blurred [None]
  - Abdominal discomfort [None]
  - Gastric disorder [None]
  - Ear pain [None]
  - Visual impairment [None]
  - Headache [None]
  - Abdominal pain [None]
